FAERS Safety Report 25390237 (Version 2)
Quarter: 2025Q2

REPORT INFORMATION
  Report Type: Spontaneous
  Country: CO (occurrence: CO)
  Receive Date: 20250603
  Receipt Date: 20250605
  Transmission Date: 20250717
  Serious: Yes (Other)
  Sender: AMGEN
  Company Number: CO-AMGEN-COLSP2025095770

PATIENT

DRUGS (2)
  1. BLINCYTO [Suspect]
     Active Substance: BLINATUMOMAB
     Indication: B precursor type acute leukaemia
     Route: 065
  2. BLINCYTO [Suspect]
     Active Substance: BLINATUMOMAB
     Indication: CD19 antigen

REACTIONS (3)
  - Acute lymphocytic leukaemia [Unknown]
  - Cytokine release syndrome [Unknown]
  - Drug effect less than expected [Unknown]
